FAERS Safety Report 4902549-1 (Version None)
Quarter: 2006Q1

REPORT INFORMATION
  Report Type: 
  Country: None (occurrence: None)
  Receive Date: 20060202
  Receipt Date: 20060119
  Transmission Date: 20060701
  Serious: Yes (Other)
  Sender: FDA-Public Use
  Company Number: DSK-2006-00560

PATIENT
  Age: 46 Year
  Sex: Female

DRUGS (7)
  1. SALIGREN [Suspect]
     Indication: SJOGREN'S SYNDROME
     Dosage: 90 MG (30 MG, 3 IN 1 D),
     Route: 048
     Dates: start: 20020323, end: 20021015
  2. THIOLA (TIOPRONIN) (TIOPRONIN) [Concomitant]
  3. VOLTAREN (DICLOFENAC DIETHYLAMINE) [Concomitant]
  4. FAMOTIDINE [Concomitant]
  5. CLARITHROMYCIN [Concomitant]
  6. BONALON                            (ALENDRONIC ACID) [Concomitant]
  7. HIBON                        (RIBOFLAVIN TETRABUTYRATE) [Concomitant]

REACTIONS (6)
  - ANAEMIA [None]
  - BLOOD PRESSURE INCREASED [None]
  - CONDITION AGGRAVATED [None]
  - RASH [None]
  - THROMBOSIS [None]
  - WHITE BLOOD CELL COUNT INCREASED [None]
